FAERS Safety Report 6801383-5 (Version None)
Quarter: 2010Q2

REPORT INFORMATION
  Report Type: 
  Country: None (occurrence: None)
  Receive Date: 20100629
  Receipt Date: 20100623
  Transmission Date: 20101027
  Serious: Yes (Other)
  Sender: FDA-Public Use
  Company Number: A0867259A

PATIENT
  Age: 49 Year
  Sex: Male

DRUGS (1)
  1. AVANDIA [Suspect]
     Dates: start: 19990101

REACTIONS (4)
  - BLINDNESS [None]
  - CARDIAC DISORDER [None]
  - EYE DISORDER [None]
  - LUNG DISORDER [None]
